FAERS Safety Report 6813912-6 (Version None)
Quarter: 2010Q3

REPORT INFORMATION
  Report Type: 
  Country: None (occurrence: None)
  Receive Date: 20100702
  Receipt Date: 20100629
  Transmission Date: 20110219
  Serious: Yes (Other)
  Sender: FDA-Public Use
  Company Number: US-MERCK-1006USA01738

PATIENT
  Age: 37 Month
  Sex: Male
  Weight: 17 kg

DRUGS (5)
  1. SINGULAIR [Suspect]
     Indication: RHINITIS ALLERGIC
     Route: 048
     Dates: start: 20071101, end: 20091217
  2. SINGULAIR [Suspect]
     Route: 048
     Dates: start: 20100401, end: 20100501
  3. FLOVENT [Concomitant]
     Route: 065
  4. ALBUTEROL SULFATE [Concomitant]
     Dosage: EVERY 4-6 HOURS
     Route: 065
  5. ALBUTEROL [Concomitant]
     Dosage: EVERY 4-6 HOURS
     Route: 065

REACTIONS (11)
  - ABNORMAL BEHAVIOUR [None]
  - AGGRESSION [None]
  - ANXIETY [None]
  - CHEILITIS [None]
  - DEPRESSION [None]
  - DYSURIA [None]
  - MICTURITION URGENCY [None]
  - OBSESSIVE-COMPULSIVE DISORDER [None]
  - OVERDOSE [None]
  - PHOBIA [None]
  - SUICIDAL IDEATION [None]
